FAERS Safety Report 10177766 (Version 1)
Quarter: 2014Q2

REPORT INFORMATION
  Report Type: Spontaneous
  Country: US (occurrence: US)
  Receive Date: 20140516
  Receipt Date: 20140516
  Transmission Date: 20141212
  Serious: No
  Sender: FDA-Public Use
  Company Number: US-SANOFI-AVENTIS-2013SA066082

PATIENT
  Age: 78 Year
  Sex: Male

DRUGS (5)
  1. APIDRA SOLOSTAR [Suspect]
     Indication: TYPE 2 DIABETES MELLITUS
     Dosage: PRODUCT STARTED FOUR TO FIVE YEARS AGO. DOSAGE - ON SLIDING SCALE.
     Route: 058
  2. SOLOSTAR [Suspect]
     Indication: TYPE 2 DIABETES MELLITUS
     Dosage: PRODUCT STARTED FOUR TO FIVE YEARS AGO.
  3. LANTUS SOLOSTAR [Suspect]
     Route: 051
  4. SOLOSTAR [Suspect]
  5. LANTUS [Suspect]
     Indication: TYPE 2 DIABETES MELLITUS
     Dosage: TAKEN TO - 4 TO 5 YEARS AGO. DOSE:75 UNIT(S)
     Route: 051

REACTIONS (4)
  - Visual impairment [Unknown]
  - Injury associated with device [Unknown]
  - Blood glucose decreased [Unknown]
  - Blood glucose abnormal [Unknown]
